FAERS Safety Report 13241150 (Version 1)
Quarter: 2017Q1

REPORT INFORMATION
  Report Type: Spontaneous
  Country: US (occurrence: US)
  Receive Date: 20170216
  Receipt Date: 20170216
  Transmission Date: 20170428
  Serious: Yes (Other)
  Sender: FDA-Public Use
  Company Number: US-AMGEN-USASP2017012567

PATIENT
  Age: 42 Year
  Sex: Male
  Weight: 155.1 kg

DRUGS (10)
  1. EPIPEN [Concomitant]
     Active Substance: EPINEPHRINE
  2. REPATHA [Suspect]
     Active Substance: EVOLOCUMAB
     Indication: TYPE V HYPERLIPIDAEMIA
     Dosage: 140 MG/ML, Q2WK
     Route: 058
     Dates: start: 201606
  3. ALLOPURINOL. [Concomitant]
     Active Substance: ALLOPURINOL
  4. METOPROLOL. [Concomitant]
     Active Substance: METOPROLOL
  5. CRESTOR [Concomitant]
     Active Substance: ROSUVASTATIN CALCIUM
  6. SILDENAFIL. [Concomitant]
     Active Substance: SILDENAFIL
  7. TOLTERODINE [Concomitant]
     Active Substance: TOLTERODINE
  8. ASPIRIN. [Concomitant]
     Active Substance: ASPIRIN
  9. FLUTICASONE. [Concomitant]
     Active Substance: FLUTICASONE
  10. ZETIA [Concomitant]
     Active Substance: EZETIMIBE

REACTIONS (1)
  - Hepatic enzyme increased [Recovered/Resolved]

NARRATIVE: CASE EVENT DATE: 20160928
